FAERS Safety Report 7774223-8 (Version None)
Quarter: 2011Q3

REPORT INFORMATION
  Report Type: 
  Country: None (occurrence: None)
  Receive Date: 20110923
  Receipt Date: 20110916
  Transmission Date: 20111222
  Serious: Yes (Other)
  Sender: FDA-Public Use
  Company Number: JP-B.I. PHARMACEUTICALS,INC./RIDGEFIELD-2011-DE-05049GD

PATIENT
  Age: 68 Year
  Sex: Female

DRUGS (3)
  1. DABIGATRAN [Suspect]
     Indication: CEREBRAL INFARCTION
     Dosage: 220 MG
  2. DABIGATRAN [Suspect]
     Indication: PROPHYLAXIS
  3. IMMUNOCHEMISTRY THERAPY [Concomitant]
     Indication: PANCREATIC CARCINOMA STAGE IV

REACTIONS (2)
  - CEREBRAL INFARCTION [None]
  - CEREBRAL ARTERY OCCLUSION [None]
